FAERS Safety Report 4525428-0 (Version None)
Quarter: 2004Q4

REPORT INFORMATION
  Report Type: 
  Country: None (occurrence: None)
  Receive Date: 20041213
  Receipt Date: 20041207
  Transmission Date: 20050328
  Serious: Yes (Life-Threatening, Hospitalization)
  Sender: FDA-Public Use
  Company Number: F04200400200

PATIENT
  Age: 83 Year
  Sex: Female

DRUGS (15)
  1. FONDAPARINUX SODIUM [Suspect]
     Dosage: 2.5MG PER DAY
     Route: 058
     Dates: start: 20040426, end: 20040506
  2. OXYBUTYNIN HYDROCHLORIDE [Concomitant]
  3. TRIAMTERENE AND HYDROCHLOROTHIAZIDE [Concomitant]
     Indication: HYPERTENSION
     Dosage: 75MG TWICE PER DAY
     Route: 048
  4. EUTHYROX [Concomitant]
     Indication: HYPOTHYROIDISM
     Dosage: 175MCG PER DAY
     Route: 048
  5. MEMANTINE [Concomitant]
     Route: 048
  6. SOTALEX [Concomitant]
     Dosage: 40MG TWICE PER DAY
     Route: 048
  7. XANEF [Concomitant]
     Indication: HYPERTENSION
     Dosage: 5MG PER DAY
     Route: 048
  8. VALORON [Concomitant]
     Indication: PAIN
     Dosage: 108MG TWICE PER DAY
     Route: 048
  9. VIOXX [Concomitant]
     Indication: PAIN
     Dosage: 25MG PER DAY
     Route: 048
  10. NEXIUM [Concomitant]
     Dosage: 40MG PER DAY
     Route: 048
  11. ZOPICLON [Concomitant]
     Route: 048
  12. ASPIRIN [Concomitant]
     Indication: ANTIPLATELET THERAPY
     Dosage: 100MG PER DAY
     Route: 048
  13. NEURONTIN [Concomitant]
     Indication: POST HERPETIC NEURALGIA
     Dosage: 300MG THREE TIMES PER DAY
     Route: 048
  14. SAROTEN [Concomitant]
     Dosage: 25MG PER DAY
     Route: 048
     Dates: start: 20040426, end: 20040506
  15. SPASMO-URGENIN [Concomitant]
     Dosage: 5MG TWICE PER DAY
     Route: 048

REACTIONS (4)
  - ANAEMIA [None]
  - CONFUSIONAL STATE [None]
  - HAEMOGLOBIN DECREASED [None]
  - RENAL IMPAIRMENT [None]
